FAERS Safety Report 8720954 (Version 2)
Quarter: 2013Q1

REPORT INFORMATION
  Report Type: Spontaneous
  Country: US (occurrence: US)
  Receive Date: 20120813
  Receipt Date: 20130117
  Transmission Date: 20140127
  Serious: Yes (Death, Hospitalization)
  Sender: FDA-Public Use
  Company Number: US-B.I. PHARMACEUTICALS,INC./RIDGEFIELD-2012-BP-18719BP

PATIENT
  Age: 66 Year
  Sex: Female
  Weight: 81.65 kg

DRUGS (13)
  1. PRADAXA [Suspect]
     Indication: ANTICOAGULANT THERAPY
     Dosage: 300 MG
     Dates: start: 20101208, end: 20110329
  2. VITAMIN B12 [Concomitant]
  3. COREG [Concomitant]
     Dosage: 50 MG
  4. ASPIRIN [Concomitant]
  5. ZANTAC [Concomitant]
     Dosage: 150 MG
  6. ZOLOFT [Concomitant]
     Dosage: 100 MG
  7. LISINOPRIL [Concomitant]
     Dosage: 40 MG
  8. XANAX [Concomitant]
  9. MULTIVITAMIN [Concomitant]
  10. ATENOLOL [Concomitant]
     Dosage: 100 MG
  11. PERCOCET [Concomitant]
  12. SPIRONOLACTONE [Concomitant]
     Dosage: 25 MG
  13. PHENERGAN [Concomitant]
     Dosage: 25 MG

REACTIONS (8)
  - Respiratory failure [Fatal]
  - Cardiac failure acute [Fatal]
  - Atrial fibrillation [Unknown]
  - Upper gastrointestinal haemorrhage [Recovered/Resolved]
  - Lower gastrointestinal haemorrhage [Recovered/Resolved]
  - Coagulopathy [Recovered/Resolved]
  - Vaginal haemorrhage [Recovered/Resolved]
  - Epistaxis [Recovered/Resolved]
